FAERS Safety Report 15154437 (Version 1)
Quarter: 2018Q3

REPORT INFORMATION
  Report Type: Spontaneous
  Country: US (occurrence: US)
  Receive Date: 20180620
  Receipt Date: 20180620
  Transmission Date: 20181010
  Serious: Yes (Other)
  Sender: FDA-Public Use
  Company Number: None

PATIENT
  Age: 62 Year
  Sex: Female
  Weight: 92.25 kg

DRUGS (6)
  1. FLAX SEED [Concomitant]
     Active Substance: FLAX SEED
  2. TRISMETERINE [Concomitant]
  3. CYCLOBENZAPRINE 10MG [Suspect]
     Active Substance: CYCLOBENZAPRINE
     Indication: HYPOTONIA
     Dosage: ?          QUANTITY:30 TABLET(S);?
     Route: 048
     Dates: start: 20180618, end: 20180619
  4. BACLOFEN. [Concomitant]
     Active Substance: BACLOFEN
  5. ATENOLOL. [Concomitant]
     Active Substance: ATENOLOL
  6. GUMMY BIOTIN [Concomitant]

REACTIONS (5)
  - Palpitations [None]
  - Myalgia [None]
  - Chills [None]
  - Pyrexia [None]
  - Limb discomfort [None]

NARRATIVE: CASE EVENT DATE: 20180619
